FAERS Safety Report 6449737-3 (Version None)
Quarter: 2009Q4

REPORT INFORMATION
  Report Type: 
  Country: None (occurrence: None)
  Receive Date: 20091120
  Receipt Date: 20091109
  Transmission Date: 20100525
  Serious: Yes (Hospitalization)
  Sender: FDA-Public Use
  Company Number: US-WATSON-2009-09625

PATIENT
  Age: 65 Year
  Sex: Female

DRUGS (1)
  1. FLUOROURACIL [Suspect]
     Indication: RECTAL CANCER
     Dosage: UNK

REACTIONS (1)
  - ACUTE PSYCHOSIS [None]
